FAERS Safety Report 7027410-0 (Version None)
Quarter: 2010Q4

REPORT INFORMATION
  Report Type: 
  Country: None (occurrence: None)
  Receive Date: 20101001
  Receipt Date: 20101001
  Transmission Date: 20110411
  Serious: Yes (Hospitalization)
  Sender: FDA-Public Use
  Company Number: None

PATIENT
  Sex: Female

DRUGS (3)
  1. OXALIPLATIN (ELOXATIN) 50 MG AND 100 MG SANOFI/AVENTIS [Suspect]
     Indication: COLON CANCER
     Dosage: 135 MG Q14 D IV
     Route: 042
     Dates: start: 20100928
  2. OXALIPLATIN (ELOXATIN) 50 MG AND 100 MG SANOFI/AVENTIS [Suspect]
  3. LEUCOVORIN 350 MG VIALS BEDFORD LABS [Suspect]
     Indication: COLON CANCER
     Dosage: 640 MG Q14 D IV
     Route: 042

REACTIONS (7)
  - ABDOMINAL DISCOMFORT [None]
  - BACK PAIN [None]
  - CYANOSIS [None]
  - NAUSEA [None]
  - PAIN [None]
  - VOMITING [None]
  - WHEEZING [None]
